FAERS Safety Report 4309538-9 (Version None)
Quarter: 2004Q1

REPORT INFORMATION
  Report Type: 
  Country: None (occurrence: None)
  Receive Date: 20040301
  Receipt Date: 20040226
  Transmission Date: 20041129
  Serious: Yes (Disabling)
  Sender: FDA-Public Use
  Company Number: 2003-09-2939

PATIENT
  Age: 30 Year
  Sex: Male
  Weight: 56.6996 kg

DRUGS (3)
  1. CLARITIN [Suspect]
     Indication: HYPERSENSITIVITY
     Dosage: 10 MG TAB QD ORAL
     Route: 048
     Dates: start: 20030410, end: 20030915
  2. CLARITIN [Suspect]
     Indication: LACRIMATION INCREASED
     Dosage: 10 MG TAB QD ORAL
     Route: 048
     Dates: start: 20030410, end: 20030915
  3. RISPERDAL [Concomitant]

REACTIONS (11)
  - ARTHRALGIA [None]
  - DIARRHOEA [None]
  - EATING DISORDER [None]
  - HYPERHIDROSIS [None]
  - PAIN [None]
  - PAIN IN EXTREMITY [None]
  - SOMNOLENCE [None]
  - THIRST [None]
  - TREMOR [None]
  - VOMITING [None]
  - WEIGHT INCREASED [None]
